FAERS Safety Report 19975705 (Version 1)
Quarter: 2021Q4

REPORT INFORMATION
  Report Type: Report from Study
  Country: US (occurrence: US)
  Receive Date: 20211021
  Receipt Date: 20211021
  Transmission Date: 20220303
  Serious: No
  Sender: FDA-Public Use
  Company Number: US-ACADIA PHARMACEUTICALS INC.-ACA-2021-PIM-003434

PATIENT
  Age: 68 Year
  Sex: Female

DRUGS (8)
  1. NUPLAZID [Suspect]
     Active Substance: PIMAVANSERIN TARTRATE
     Indication: Parkinson^s disease
     Dosage: 10 MILLIGRAM, QD
     Route: 048
     Dates: start: 20210804
  2. CARBIDOPA [Concomitant]
     Active Substance: CARBIDOPA
  3. CEPHALEXIN [Concomitant]
     Active Substance: CEPHALEXIN
  4. LISINOPRIL [Concomitant]
     Active Substance: LISINOPRIL
  5. MELATONIN [Concomitant]
     Active Substance: MELATONIN
  6. PRAMIPEXOLE [Concomitant]
     Active Substance: PRAMIPEXOLE
  7. SOLIFENACIN [Concomitant]
     Active Substance: SOLIFENACIN
  8. LORTAB [Concomitant]
     Active Substance: ACETAMINOPHEN\HYDROCODONE BITARTRATE

REACTIONS (2)
  - Goitre [Not Recovered/Not Resolved]
  - Underdose [Not Recovered/Not Resolved]

NARRATIVE: CASE EVENT DATE: 20210804
